FAERS Safety Report 5390249-6 (Version None)
Quarter: 2007Q3

REPORT INFORMATION
  Report Type: 
  Country: None (occurrence: None)
  Receive Date: 20070718
  Receipt Date: 20070705
  Transmission Date: 20080115
  Serious: Yes (Other)
  Sender: FDA-Public Use
  Company Number: JP-GENENTECH-238477

PATIENT
  Age: 58 Year
  Sex: Female

DRUGS (4)
  1. HERCEPTIN [Suspect]
     Indication: DRUG USE FOR UNKNOWN INDICATION
     Dosage: UNK, 1/WEEK
     Route: 041
     Dates: start: 20030615
  2. HERCEPTIN [Suspect]
     Dosage: UNK, 2/MONTH
     Dates: start: 20050101
  3. HERCEPTIN [Suspect]
     Dosage: UNK, 1/MONTH
     Dates: start: 20060501
  4. NAVELBINE [Suspect]
     Indication: DRUG USE FOR UNKNOWN INDICATION
     Dosage: UNK, UNK
     Dates: start: 20061015

REACTIONS (1)
  - DEAFNESS [None]
